FAERS Safety Report 7011790-6 (Version None)
Quarter: 2010Q3

REPORT INFORMATION
  Report Type: 
  Country: None (occurrence: None)
  Receive Date: 20100923
  Receipt Date: 20090717
  Transmission Date: 20110219
  Serious: No
  Sender: FDA-Public Use
  Company Number: US-WYE-H09957009

PATIENT
  Sex: Female
  Weight: 49.03 kg

DRUGS (13)
  1. PREMARIN [Suspect]
     Indication: VULVOVAGINAL DRYNESS
     Route: 067
     Dates: start: 20090301, end: 20090624
  2. ARTIFICIAL TEARS [Concomitant]
  3. FEMHRT [Concomitant]
  4. NASACORT [Concomitant]
  5. NEXIUM [Concomitant]
  6. METRONIDAZOLE [Concomitant]
  7. SYNTHROID [Concomitant]
  8. TOBRADEX [Concomitant]
  9. VITAMIN D [Concomitant]
  10. URSODIOL [Concomitant]
  11. TRIAMCINOLONE [Concomitant]
  12. ESTER C/BIOFLAVONOIDS [Concomitant]
  13. RESTASIS [Concomitant]

REACTIONS (4)
  - CONDITION AGGRAVATED [None]
  - FATIGUE [None]
  - MYALGIA [None]
  - SLEEP DISORDER [None]
